FAERS Safety Report 7135869-3 (Version None)
Quarter: 2010Q4

REPORT INFORMATION
  Report Type: 
  Country: None (occurrence: None)
  Receive Date: 20101118
  Receipt Date: 20101108
  Transmission Date: 20110411
  Serious: Yes (Hospitalization)
  Sender: FDA-Public Use
  Company Number: TOR-2010-0088

PATIENT
  Age: 85 Year
  Sex: Female

DRUGS (1)
  1. FARESTON [Suspect]
     Indication: BREAST CANCER RECURRENT
     Dosage: 12O MG, ORAL
     Route: 048
     Dates: start: 20080908, end: 20081005

REACTIONS (5)
  - DEEP VEIN THROMBOSIS [None]
  - DEHYDRATION [None]
  - FALL [None]
  - HYPOPHAGIA [None]
  - PULMONARY THROMBOSIS [None]
